FAERS Safety Report 6477982-X (Version None)
Quarter: 2009Q4

REPORT INFORMATION
  Report Type: 
  Country: None (occurrence: None)
  Receive Date: 20091207
  Receipt Date: 20091125
  Transmission Date: 20100525
  Serious: Yes (Other)
  Sender: FDA-Public Use
  Company Number: B0602894A

PATIENT
  Sex: Female
  Weight: 45.2 kg

DRUGS (3)
  1. RELENZA [Suspect]
     Indication: H1N1 INFLUENZA
     Dosage: 10MG TWICE PER DAY
     Route: 055
     Dates: start: 20091026, end: 20091026
  2. HUSTAZOL [Concomitant]
     Indication: INFLUENZA
     Dosage: 30MG PER DAY
     Route: 048
     Dates: start: 20091026, end: 20091030
  3. MUCODYNE [Concomitant]
     Indication: INFLUENZA
     Dosage: 750MG PER DAY
     Route: 048
     Dates: start: 20091026, end: 20091030

REACTIONS (3)
  - ABNORMAL BEHAVIOUR [None]
  - AGGRESSION [None]
  - AMNESIA [None]
